FAERS Safety Report 25591334 (Version 1)
Quarter: 2025Q3

REPORT INFORMATION
  Report Type: Report from Study
  Country: JP (occurrence: JP)
  Receive Date: 20250722
  Receipt Date: 20250722
  Transmission Date: 20251021
  Serious: Yes (Hospitalization)
  Sender: ABBVIE
  Company Number: JP-ABBVIE-6132858

PATIENT
  Age: 74 Year
  Sex: Male

DRUGS (5)
  1. VYALEV [Suspect]
     Active Substance: FOSCARBIDOPA\FOSLEVODOPA
     Indication: Parkinson^s disease
     Route: 058
  2. VYALEV [Suspect]
     Active Substance: FOSCARBIDOPA\FOSLEVODOPA
     Route: 058
  3. VYALEV [Suspect]
     Active Substance: FOSCARBIDOPA\FOSLEVODOPA
     Route: 058
     Dates: start: 20250206
  4. VYALEV [Suspect]
     Active Substance: FOSCARBIDOPA\FOSLEVODOPA
     Route: 058
  5. VYALEV [Suspect]
     Active Substance: FOSCARBIDOPA\FOSLEVODOPA
     Route: 058

REACTIONS (8)
  - Malaise [Unknown]
  - Infusion site reaction [Recovered/Resolved]
  - Malaise [Recovered/Resolved]
  - Oedema peripheral [Unknown]
  - Infusion site induration [Unknown]
  - Infusion site discharge [Unknown]
  - Infusion site reaction [Unknown]
  - Heat illness [Unknown]

NARRATIVE: CASE EVENT DATE: 20250101
